FAERS Safety Report 14515634 (Version 1)
Quarter: 2018Q1

REPORT INFORMATION
  Report Type: Spontaneous
  Country: US (occurrence: US)
  Receive Date: 20180210
  Receipt Date: 20180210
  Transmission Date: 20180509
  Serious: Yes (Other)
  Sender: FDA-Public Use
  Company Number: US-TEVA-2018-US-856103

PATIENT
  Sex: Male

DRUGS (2)
  1. ATRA [Concomitant]
     Active Substance: TRETINOIN
     Indication: ACUTE PROMYELOCYTIC LEUKAEMIA
     Dates: end: 201801
  2. TRISENOX [Suspect]
     Active Substance: ARSENIC TRIOXIDE
     Indication: ACUTE PROMYELOCYTIC LEUKAEMIA
     Route: 065
     Dates: end: 201801

REACTIONS (6)
  - Fatigue [Unknown]
  - Electrocardiogram QT prolonged [Not Recovered/Not Resolved]
  - Adverse drug reaction [Unknown]
  - Dizziness [Unknown]
  - Ejection fraction decreased [Not Recovered/Not Resolved]
  - Dyspnoea [Unknown]

NARRATIVE: CASE EVENT DATE: 201801
